FAERS Safety Report 8200891-2 (Version None)
Quarter: 2012Q1

REPORT INFORMATION
  Report Type: 
  Country: None (occurrence: None)
  Receive Date: 20120312
  Receipt Date: 20110405
  Transmission Date: 20120608
  Serious: No
  Sender: FDA-Public Use
  Company Number: US-ABBOTT-11P-163-0717700-00

PATIENT
  Sex: Female
  Weight: 86.26 kg

DRUGS (2)
  1. NORETHINDRONE [Concomitant]
     Indication: DRUG THERAPY
     Dates: start: 20110316
  2. LUPRON DEPOT [Suspect]
     Indication: ENDOMETRIOSIS
     Dates: start: 20101201, end: 20110316

REACTIONS (4)
  - HAEMORRHAGE [None]
  - PELVIC PAIN [None]
  - MUSCULAR WEAKNESS [None]
  - MIGRAINE [None]
